FAERS Safety Report 19989126 (Version 2)
Quarter: 2022Q1

REPORT INFORMATION
  Report Type: Spontaneous
  Country: US (occurrence: US)
  Receive Date: 20211025
  Receipt Date: 20220302
  Transmission Date: 20220423
  Serious: Yes (Hospitalization)
  Sender: FDA-Public Use
  Company Number: US-JNJFOC-20211020498

PATIENT
  Age: 17 Year
  Sex: Female
  Weight: 54.7 kg

DRUGS (2)
  1. ACETAMINOPHEN [Suspect]
     Active Substance: ACETAMINOPHEN
     Indication: Suicide attempt
     Dosage: ACETAMINOPHEN 500 MG?TOTAL DOSE 10000 MG
     Route: 048
     Dates: start: 20020205, end: 20020205
  2. IBUPROFEN [Suspect]
     Active Substance: IBUPROFEN
     Indication: Suicide attempt
     Dosage: 4000 MG DAILY FOR ONE DAY
     Route: 048
     Dates: start: 20020205, end: 20020205

REACTIONS (4)
  - Suicide attempt [Recovered/Resolved]
  - Acute hepatic failure [Recovered/Resolved]
  - Drug-induced liver injury [Recovered/Resolved]
  - Intentional overdose [Recovered/Resolved]

NARRATIVE: CASE EVENT DATE: 20020205
